FAERS Safety Report 22660241 (Version 1)
Quarter: 2023Q2

REPORT INFORMATION
  Report Type: Spontaneous
  Country: US (occurrence: US)
  Receive Date: 20230630
  Receipt Date: 20230630
  Transmission Date: 20230722
  Serious: No
  Sender: FDA-Public Use
  Company Number: US-JAZZ PHARMACEUTICALS-2022-US-024463

PATIENT
  Sex: Male

DRUGS (4)
  1. EPIDIOLEX [Suspect]
     Active Substance: CANNABIDIOL
     Indication: Lennox-Gastaut syndrome
     Dosage: 11.6 MILLILITER, BID
     Dates: start: 2018
  2. ONFI [Concomitant]
     Active Substance: CLOBAZAM
     Dosage: UNK
  3. DANZEL [Concomitant]
     Dosage: UNK
  4. LAMOTRIGINE [Concomitant]
     Active Substance: LAMOTRIGINE
     Dosage: UNK

REACTIONS (3)
  - Hiatus hernia [Unknown]
  - Balance disorder [Unknown]
  - Weight decreased [Unknown]
